FAERS Safety Report 8557099 (Version 3)
Quarter: 2013Q2

REPORT INFORMATION
  Report Type: Spontaneous
  Country: US (occurrence: US)
  Receive Date: 20120511
  Receipt Date: 20130522
  Transmission Date: 20140414
  Serious: Yes (Hospitalization, Other)
  Sender: FDA-Public Use
  Company Number: US-JNJFOC-20120504014

PATIENT
  Age: 89 Year
  Sex: Female

DRUGS (4)
  1. IBUPROFEN [Suspect]
     Indication: PAIN
     Route: 048
  2. CORDARONE [Suspect]
     Indication: CARDIAC DISORDER
     Route: 048
     Dates: start: 1999
  3. LIPITOR [Suspect]
     Indication: PRODUCT USED FOR UNKNOWN INDICATION
     Route: 065
  4. AN UNKNOWN MEDICATION [Suspect]
     Indication: PRODUCT USED FOR UNKNOWN INDICATION
     Route: 065

REACTIONS (8)
  - Glaucoma [Unknown]
  - Hypoacusis [Unknown]
  - Hypersensitivity [Unknown]
  - Blindness [Unknown]
  - Dizziness [Unknown]
  - Swollen tongue [Unknown]
  - Malaise [Unknown]
  - Headache [Unknown]
